FAERS Safety Report 9190404 (Version 1)
Quarter: 2013Q1

REPORT INFORMATION
  Report Type: Spontaneous
  Country: US (occurrence: None)
  Receive Date: 20120703
  Receipt Date: 20120703
  Transmission Date: 20140127
  Serious: Yes (Other)
  Sender: FDA-Public Use
  Company Number: PHEH2012US005903

PATIENT
  Age: 51 Year
  Sex: Male
  Weight: 188 kg

DRUGS (1)
  1. GILENYA (FTY)CAPSULE, 0.5 MG [Suspect]
     Indication: MULTIPLE SCLEROSIS
     Route: 048
     Dates: start: 20111108

REACTIONS (4)
  - Sinusitis [None]
  - Liver function test abnormal [None]
  - CD4 lymphocytes decreased [None]
  - CD8 lymphocytes decreased [None]
